FAERS Safety Report 10175581 (Version 2)
Quarter: 2014Q2

REPORT INFORMATION
  Report Type: Spontaneous
  Country: FI (occurrence: FI)
  Receive Date: 20140516
  Receipt Date: 20140520
  Transmission Date: 20141212
  Serious: Yes (Other)
  Sender: FDA-Public Use
  Company Number: FI-009507513-1405FIN005489

PATIENT
  Age: 31 Year
  Sex: Female

DRUGS (1)
  1. NUVARING [Suspect]
     Dosage: UNK
     Route: 067
     Dates: start: 201302

REACTIONS (8)
  - Abortion spontaneous [Recovered/Resolved]
  - Unintended pregnancy [Recovered/Resolved]
  - Vaginal haemorrhage [Recovered/Resolved]
  - Product colour issue [Unknown]
  - Pain [Recovered/Resolved]
  - Uterine spasm [Recovered/Resolved]
  - Feeling abnormal [Recovered/Resolved]
  - Incorrect product storage [Unknown]
